FAERS Safety Report 4614837-7 (Version None)
Quarter: 2005Q1

REPORT INFORMATION
  Report Type: 
  Country: None (occurrence: None)
  Receive Date: 20050318
  Receipt Date: 20050318
  Transmission Date: 20050727
  Serious: Yes (Death)
  Sender: FDA-Public Use
  Company Number: None

PATIENT
  Age: 34 Year
  Sex: Male
  Weight: 77.1115 kg

DRUGS (5)
  1. CELEXA [Suspect]
     Indication: DEPRESSION
     Dosage: CELEXA 10 MG  Q HS   ORAL
     Route: 048
     Dates: start: 19991130, end: 20050124
  2. CELEXA [Suspect]
     Indication: OBSESSIVE-COMPULSIVE DISORDER
     Dosage: CELEXA 10 MG  Q HS   ORAL
     Route: 048
     Dates: start: 19991130, end: 20050124
  3. CITALOPRAM     20MG [Suspect]
     Indication: DEPRESSION
     Dosage: CITALOPRAM 10    Q HS   ORAL
     Route: 048
     Dates: start: 20050125, end: 20050215
  4. CITALOPRAM     20MG [Suspect]
     Indication: OBSESSIVE-COMPULSIVE DISORDER
     Dosage: CITALOPRAM 10    Q HS   ORAL
     Route: 048
     Dates: start: 20050125, end: 20050215
  5. BUSPIRONE [Concomitant]

REACTIONS (9)
  - COMPLETED SUICIDE [None]
  - DEPRESSION [None]
  - FEELING ABNORMAL [None]
  - FEELING OF DESPAIR [None]
  - LETHARGY [None]
  - OBSESSIVE-COMPULSIVE DISORDER [None]
  - PANIC ATTACK [None]
  - PHARMACEUTICAL PRODUCT COMPLAINT [None]
  - THINKING ABNORMAL [None]
